FAERS Safety Report 14949909 (Version 1)
Quarter: 2018Q2

REPORT INFORMATION
  Report Type: Spontaneous
  Country: GB (occurrence: GB)
  Receive Date: 20180530
  Receipt Date: 20180530
  Transmission Date: 20180711
  Serious: Yes (Other)
  Sender: FDA-Public Use
  Company Number: GB-TEVA-2018-GB-897722

PATIENT
  Age: 71 Year
  Sex: Female
  Weight: 84 kg

DRUGS (12)
  1. PARACETAMOL [Concomitant]
     Active Substance: ACETAMINOPHEN
     Dosage: 8 DOSAGE FORMS DAILY;
     Route: 065
     Dates: start: 20120621
  2. BENDROFLUMETHIAZIDE [Concomitant]
     Active Substance: BENDROFLUMETHIAZIDE
     Indication: JOINT SWELLING
     Dosage: 1 DOSAGE FORMS DAILY; MORNING
     Route: 065
     Dates: start: 20171220
  3. ACIDEX [Concomitant]
     Active Substance: CALCIUM CARBONATE\SODIUM ALGINATE\SODIUM BICARBONATE
     Dosage: 1 OR 2 TEASPOONS UP TO 4 HOURLY
     Route: 065
     Dates: start: 20130304
  4. MATRIFEN [Concomitant]
     Active Substance: FENTANYL
     Indication: PAIN
     Route: 062
     Dates: start: 20171220, end: 20180109
  5. BUDESONIDE. [Concomitant]
     Active Substance: BUDESONIDE
     Dosage: 4 DOSAGE FORMS DAILY; PUFFS.
     Route: 055
     Dates: start: 20140721
  6. FENCINO [Concomitant]
     Indication: PAIN
     Route: 062
     Dates: start: 20180109
  7. VENTOLIN [Concomitant]
     Active Substance: ALBUTEROL SULFATE
     Dosage: 1 OR 2 PUFFS UP TO 4 TIMES A DAY
     Route: 055
     Dates: start: 20150720
  8. ATORVASTATIN CALCIUM. [Suspect]
     Active Substance: ATORVASTATIN CALCIUM
     Route: 065
     Dates: start: 20171220
  9. THEICAL-D3 [Concomitant]
     Dosage: 1 DOSAGE FORMS DAILY;
     Route: 065
     Dates: start: 20161010
  10. OMEPRAZOLE. [Concomitant]
     Active Substance: OMEPRAZOLE
     Dosage: 1 DOSAGE FORMS DAILY; MORNING, CAN USE IN EVENING.
     Route: 065
     Dates: start: 20170324, end: 20180323
  11. COSMOCOL [Concomitant]
     Indication: CONSTIPATION
     Dosage: 1 DOSAGE FORMS DAILY;
     Route: 065
     Dates: start: 20140912, end: 20180323
  12. ALGESAL [Concomitant]
     Active Substance: DIETHYLAMINE SALICYLATE
     Indication: OSTEOARTHRITIS
     Dosage: 3 DOSAGE FORMS DAILY;
     Route: 065
     Dates: start: 20130304

REACTIONS (3)
  - Myalgia [Unknown]
  - Sleep disorder [Recovered/Resolved]
  - Malaise [Unknown]

NARRATIVE: CASE EVENT DATE: 20180323
